FAERS Safety Report 10939999 (Version 1)
Quarter: 2015Q1

REPORT INFORMATION
  Report Type: Spontaneous
  Country: DE (occurrence: DE)
  Receive Date: 20150322
  Receipt Date: 20150322
  Transmission Date: 20150721
  Serious: Yes (Death, Life-Threatening, Congenital Anomaly, Other)
  Sender: FDA-Public Use
  Company Number: DE-DRREDDYS-GER/GER/15/0046760

PATIENT
  Age: 1 Day
  Sex: Male
  Weight: 2.91 kg

DRUGS (3)
  1. FOLSAEURE [Concomitant]
     Active Substance: FOLIC ACID
     Indication: PRODUCT USED FOR UNKNOWN INDICATION
     Route: 064
  2. YASMIN [Concomitant]
     Active Substance: DROSPIRENONE\ETHINYL ESTRADIOL
     Indication: PRODUCT USED FOR UNKNOWN INDICATION
     Route: 064
  3. LAMOTRIGINE. [Suspect]
     Active Substance: LAMOTRIGINE
     Indication: PRODUCT USED FOR UNKNOWN INDICATION
     Dosage: 100-0-200MG/D
     Route: 064
     Dates: start: 20131224, end: 20140911

REACTIONS (12)
  - Ventricular septal defect [Unknown]
  - Anomalous pulmonary venous connection [Fatal]
  - Death neonatal [Fatal]
  - Lactic acidosis [Unknown]
  - Cyanosis [Unknown]
  - Tachycardia [Unknown]
  - Hypercapnia [Unknown]
  - Atrial septal defect [Fatal]
  - Hypotension [Unknown]
  - Double outlet right ventricle [Fatal]
  - Foetal exposure during pregnancy [Unknown]
  - Anuria [Unknown]

NARRATIVE: CASE EVENT DATE: 20140911
